FAERS Safety Report 4893126-X (Version None)
Quarter: 2005Q4

REPORT INFORMATION
  Report Type: 
  Country: None (occurrence: None)
  Receive Date: 20051223
  Receipt Date: 20050901
  Transmission Date: 20060501
  Serious: Yes (Hospitalization)
  Sender: FDA-Public Use
  Company Number: PHEH2005US09825

PATIENT
  Age: 54 Year
  Sex: Male

DRUGS (1)
  1. CLOZARIL [Suspect]
     Indication: SCHIZOPHRENIA
     Dates: end: 20050810

REACTIONS (3)
  - LEUKOPENIA [None]
  - NEUTROPENIA [None]
  - PSYCHOTIC DISORDER [None]
